FAERS Safety Report 7328366-3 (Version None)
Quarter: 2011Q1

REPORT INFORMATION
  Report Type: 
  Country: None (occurrence: None)
  Receive Date: 20110303
  Receipt Date: 20110224
  Transmission Date: 20110831
  Serious: Yes (Hospitalization, Other)
  Sender: FDA-Public Use
  Company Number: US-SANOFI-AVENTIS-2011SA012830

PATIENT
  Age: 52 Year
  Sex: Male

DRUGS (4)
  1. LIPITOR [Concomitant]
  2. AMBIEN [Suspect]
     Indication: INSOMNIA
     Route: 048
     Dates: start: 20090601, end: 20110101
  3. SEROQUEL [Suspect]
     Route: 048
     Dates: start: 20101201
  4. METOPROLOL [Concomitant]

REACTIONS (4)
  - DRUG ABUSE [None]
  - CONDITION AGGRAVATED [None]
  - INTRACRANIAL ANEURYSM [None]
  - SUICIDAL IDEATION [None]
